FAERS Safety Report 12933559 (Version 1)
Quarter: 2016Q4

REPORT INFORMATION
  Report Type: Spontaneous
  Country: US (occurrence: US)
  Receive Date: 20161111
  Receipt Date: 20161111
  Transmission Date: 20170207
  Serious: Yes (Hospitalization, Other)
  Sender: FDA-Public Use
  Company Number: US-GLAXOSMITHKLINE-US2016166409

PATIENT
  Age: 85 Year
  Sex: Female

DRUGS (3)
  1. VOLTAREN [Suspect]
     Active Substance: DICLOFENAC SODIUM
     Indication: PAIN IN EXTREMITY
  2. VOLTAREN [Suspect]
     Active Substance: DICLOFENAC SODIUM
     Indication: ARTHRITIS
     Dosage: UNK
     Dates: start: 201501
  3. VOLTAREN [Suspect]
     Active Substance: DICLOFENAC SODIUM
     Indication: HIP FRACTURE

REACTIONS (5)
  - Fall [Unknown]
  - Drug administered at inappropriate site [Unknown]
  - Hip fracture [Unknown]
  - Hip surgery [Not Recovered/Not Resolved]
  - Off label use [Unknown]
